FAERS Safety Report 12959937 (Version 1)
Quarter: 2016Q4

REPORT INFORMATION
  Report Type: Spontaneous
  Country: US (occurrence: US)
  Receive Date: 20161121
  Receipt Date: 20161121
  Transmission Date: 20170207
  Serious: No
  Sender: FDA-Public Use
  Company Number: US-JNJFOC-20161108690

PATIENT
  Age: 7 Decade
  Sex: Female
  Weight: 76.2 kg

DRUGS (2)
  1. MENS ROGAINE EXTRA STRENGTH [Suspect]
     Active Substance: MINOXIDIL
     Indication: ALOPECIA
     Route: 061
  2. MENS ROGAINE EXTRA STRENGTH [Suspect]
     Active Substance: MINOXIDIL
     Indication: ALOPECIA
     Dosage: HALF A CAPFUL, STARTED 2X DAILY, SWITCHED TO 1X DAILY
     Route: 061

REACTIONS (4)
  - Overdose [Unknown]
  - Off label use [Unknown]
  - Product use issue [Unknown]
  - Expired product administered [Unknown]
